FAERS Safety Report 25838318 (Version 5)
Quarter: 2025Q4

REPORT INFORMATION
  Report Type: Report from Study
  Country: US (occurrence: US)
  Receive Date: 20250923
  Receipt Date: 20251027
  Transmission Date: 20260118
  Serious: Yes (Other)
  Sender: MALLINCKRODT
  Company Number: US-MALLINCKRODT-MNK202505849

PATIENT
  Age: 82 Year
  Sex: Female

DRUGS (7)
  1. CORTICOTROPIN [Suspect]
     Active Substance: CORTICOTROPIN
     Indication: Giant cell arteritis
     Dosage: 40 UNITS
     Route: 058
  2. CORTICOTROPIN [Suspect]
     Active Substance: CORTICOTROPIN
     Indication: Polymyalgia rheumatica
  3. CORTICOTROPIN [Suspect]
     Active Substance: CORTICOTROPIN
     Indication: Giant cell arteritis
  4. CORTICOTROPIN [Suspect]
     Active Substance: CORTICOTROPIN
     Indication: Polymyalgia rheumatica
  5. QVAR [Suspect]
     Active Substance: BECLOMETHASONE DIPROPIONATE
     Indication: Product used for unknown indication
     Dosage: UNKNOWN
  6. PREDNISONE [Concomitant]
     Active Substance: PREDNISONE
     Dosage: 5
  7. PREDNISONE [Concomitant]
     Active Substance: PREDNISONE
     Dosage: 4

REACTIONS (11)
  - Giant cell arteritis [Unknown]
  - Polymyalgia rheumatica [Unknown]
  - Condition aggravated [Unknown]
  - Blood pressure decreased [Recovering/Resolving]
  - Abdominal discomfort [Unknown]
  - Illness [Recovering/Resolving]
  - Fatigue [Not Recovered/Not Resolved]
  - Nasopharyngitis [Not Recovered/Not Resolved]
  - Injection site pruritus [Unknown]
  - Injection site erythema [Recovered/Resolved]
  - Herpes zoster [Unknown]

NARRATIVE: CASE EVENT DATE: 20250101
